FAERS Safety Report 7602041-X (Version None)
Quarter: 2011Q3

REPORT INFORMATION
  Report Type: 
  Country: None (occurrence: None)
  Receive Date: 20110711
  Receipt Date: 20110701
  Transmission Date: 20111222
  Serious: Yes (Disabling, Other)
  Sender: FDA-Public Use
  Company Number: FR-PFIZER INC-2011117176

PATIENT
  Age: 38 Year
  Sex: Male

DRUGS (1)
  1. XALATAN [Suspect]
     Indication: GLAUCOMA
     Dosage: 1 GTT, 1X/DAY
     Dates: start: 20060801

REACTIONS (3)
  - PAIN [None]
  - MUSCLE CONTRACTURE [None]
  - MYALGIA [None]
